FAERS Safety Report 6984640-1 (Version None)
Quarter: 2010Q3

REPORT INFORMATION
  Report Type: 
  Country: None (occurrence: None)
  Receive Date: 20100914
  Receipt Date: 20100914
  Transmission Date: 20110219
  Serious: No
  Sender: FDA-Public Use
  Company Number: None

PATIENT
  Sex: Male
  Weight: 115.6672 kg

DRUGS (1)
  1. SYNTHROID [Suspect]
     Dosage: 125 MCG QD PO
     Route: 048
     Dates: start: 20090701

REACTIONS (4)
  - DIZZINESS [None]
  - DYSPNOEA [None]
  - HYPERHIDROSIS [None]
  - SYNCOPE [None]
